FAERS Safety Report 7400411-6 (Version None)
Quarter: 2011Q1

REPORT INFORMATION
  Report Type: 
  Country: None (occurrence: None)
  Receive Date: 20110329
  Receipt Date: 20110316
  Transmission Date: 20110831
  Serious: Yes (Death, Other)
  Sender: FDA-Public Use
  Company Number: 011250

PATIENT
  Age: 58 Year
  Sex: Female

DRUGS (3)
  1. BUSULFEX [Suspect]
     Indication: STEM CELL TRANSPLANT
     Dosage: INTRAVENOUS
     Route: 042
  2. BUSULFEX [Suspect]
     Indication: BONE MARROW TRANSPLANT
     Dosage: INTRAVENOUS
     Route: 042
  3. CYCLOPHOSPHAMIDE [Concomitant]

REACTIONS (3)
  - CHRONIC GRAFT VERSUS HOST DISEASE [None]
  - INFECTION [None]
  - ACUTE GRAFT VERSUS HOST DISEASE IN SKIN [None]
